FAERS Safety Report 13655391 (Version 1)
Quarter: 2017Q2

REPORT INFORMATION
  Report Type: Report from Study
  Country: US (occurrence: BR)
  Receive Date: 20170615
  Receipt Date: 20170615
  Transmission Date: 20170830
  Serious: Yes (Other)
  Sender: FDA-Public Use
  Company Number: US-SUNOVION-2017SUN002538

PATIENT
  Sex: Female
  Weight: 74 kg

DRUGS (4)
  1. ATROVENT [Concomitant]
     Active Substance: IPRATROPIUM BROMIDE
     Indication: EMPHYSEMA
     Dosage: UNK
  2. STRIVERDI RESPIMAT [Concomitant]
     Active Substance: OLODATEROL HYDROCHLORIDE
     Indication: EMPHYSEMA
     Dosage: UNK
  3. FLUIMUCIL [Concomitant]
     Active Substance: ACETYLCYSTEINE
     Indication: EMPHYSEMA
  4. INDACATEROL AND GLYCOPYRROLATE [Suspect]
     Active Substance: GLYCOPYRROLATE\INDACATEROL MALEATE
     Indication: EMPHYSEMA
     Dosage: 1 DF (GLYCOPYRRONIUM BROMIDE 50 UG/ INDACATEROL 110 UG), QD
     Route: 055
     Dates: start: 2016

REACTIONS (13)
  - Malaise [Unknown]
  - Body height increased [Unknown]
  - Cyst [Unknown]
  - Respiratory disorder [Unknown]
  - Lung disorder [Unknown]
  - Tongue discolouration [Unknown]
  - Gait disturbance [Unknown]
  - Insomnia [Unknown]
  - Aortic aneurysm [Unknown]
  - Sleep apnoea syndrome [Unknown]
  - Dyspnoea exertional [Unknown]
  - Weight increased [Unknown]
  - Blood pressure increased [Unknown]
